FAERS Safety Report 6264288-7 (Version None)
Quarter: 2009Q3

REPORT INFORMATION
  Report Type: 
  Country: None (occurrence: None)
  Receive Date: 20090710
  Receipt Date: 20090629
  Transmission Date: 20100115
  Serious: Yes (Hospitalization)
  Sender: FDA-Public Use
  Company Number: US-BAYER-200924977NA

PATIENT
  Age: 62 Year
  Sex: Female

DRUGS (13)
  1. DACARBAZINE [Suspect]
     Indication: MALIGNANT MELANOMA
     Dosage: AS USED: 1300 MG
     Route: 042
     Dates: start: 20090429, end: 20090429
  2. IPILIMUMAB [Suspect]
     Indication: MALIGNANT MELANOMA
     Dosage: AS USED: 569 MG
     Route: 042
     Dates: start: 20090501, end: 20090501
  3. IPILIMUMAB [Suspect]
     Dosage: TOTAL DAILY DOSE: 569 MG
     Route: 042
     Dates: start: 20090610, end: 20090610
  4. ASPIRIN [Concomitant]
     Dates: start: 20050620
  5. CELEXA [Concomitant]
     Dates: start: 20081201
  6. SIMVASTIN [Concomitant]
     Dates: start: 20050908
  7. MULTIPLE VITAMINS [Concomitant]
     Dates: start: 19990101
  8. BUDESONIDE [Concomitant]
     Dates: start: 20090514
  9. PROCTOFOAM HC [Concomitant]
     Dates: start: 20090429
  10. FISH OIL [Concomitant]
     Dates: start: 20090101
  11. IMODIUM [Concomitant]
     Dates: start: 20090510
  12. LOMOTIL [Concomitant]
     Dates: start: 20090513
  13. HYDROCORTISONE [Concomitant]
     Dates: start: 20090510

REACTIONS (2)
  - ABDOMINAL PAIN [None]
  - HYPOTENSION [None]
